FAERS Safety Report 19602224 (Version 3)
Quarter: 2021Q3

REPORT INFORMATION
  Report Type: Report from Study
  Country: RU (occurrence: RU)
  Receive Date: 20210723
  Receipt Date: 20210906
  Transmission Date: 20211014
  Serious: Yes (Other)
  Sender: FDA-Public Use
  Company Number: NVSC2021RU158594

PATIENT
  Age: 70 Year
  Sex: Female

DRUGS (5)
  1. FEMARA [Concomitant]
     Active Substance: LETROZOLE
     Indication: PRODUCT USED FOR UNKNOWN INDICATION
     Dosage: 2.5 MG, QD (250 MG, QD)
     Route: 065
  2. RISARG [Suspect]
     Active Substance: RIBOCICLIB SUCCINATE
     Indication: BREAST CANCER
     Dosage: 600 MG, QD (200 MG TABLETS NO 63)
     Route: 048
     Dates: start: 20200924
  3. HEPTRAL [Concomitant]
     Active Substance: ADEMETIONINE
     Indication: PRODUCT USED FOR UNKNOWN INDICATION
     Dosage: 800 MG, QD
     Route: 065
  4. XGEVA [Concomitant]
     Active Substance: DENOSUMAB
     Indication: PRODUCT USED FOR UNKNOWN INDICATION
     Dosage: 120 MG (ONCE IN 28 DAYS)
     Route: 058
  5. URSOSAN [Concomitant]
     Active Substance: URSODIOL
     Indication: PRODUCT USED FOR UNKNOWN INDICATION
     Dosage: 500 MG, QD
     Route: 065

REACTIONS (5)
  - Taste disorder [Recovered/Resolved]
  - Body temperature increased [Recovered/Resolved]
  - COVID-19 [Unknown]
  - Hyposmia [Recovered/Resolved]
  - Oropharyngeal pain [Recovered/Resolved]

NARRATIVE: CASE EVENT DATE: 20210629
